FAERS Safety Report 24785285 (Version 2)
Quarter: 2025Q1

REPORT INFORMATION
  Report Type: Spontaneous
  Country: JP (occurrence: JP)
  Receive Date: 20241228
  Receipt Date: 20250109
  Transmission Date: 20250409
  Serious: Yes (Life-Threatening)
  Sender: ACCORD
  Company Number: JP-MLMSERVICE-20241211-PI294299-00218-1

PATIENT
  Age: 12 Year
  Sex: Male
  Weight: 42 kg

DRUGS (15)
  1. METHOTREXATE [Suspect]
     Active Substance: METHOTREXATE
     Indication: B precursor type acute leukaemia
     Dosage: BLOCK 1, HIGH DOSE, ON DAYS 1, 15 AND 29; BLOCK 2 ON DAYS 1 AND 22
     Route: 037
     Dates: start: 2022
  2. VINCRISTINE [Concomitant]
     Active Substance: VINCRISTINE
     Indication: B precursor type acute leukaemia
     Dosage: ON DAYS 1, 8, 15 AND 22; BLOCK 1
  3. ASPARAGINASE [Concomitant]
     Active Substance: ASPARAGINASE
     Indication: B precursor type acute leukaemia
  4. CYCLOPHOSPHAMIDE [Concomitant]
     Active Substance: CYCLOPHOSPHAMIDE
     Indication: B precursor type acute leukaemia
     Dosage: BLOCK 2, FROM DAYS 1 TO 5.
  5. ETOPOSIDE [Concomitant]
     Active Substance: ETOPOSIDE
     Indication: B precursor type acute leukaemia
     Dosage: BLOCK 2, FROM DAYS 1 TO 5.
  6. BORTEZOMIB [Concomitant]
     Active Substance: BORTEZOMIB
     Indication: B precursor type acute leukaemia
     Dosage: ON DAYS 1, 4, 8 AND 11 IN BLOCK 1 AND ON DAYS 1, 4, AND 8 IN BLOCK 2
  7. PREDNISONE [Concomitant]
     Active Substance: PREDNISONE
     Indication: B precursor type acute leukaemia
     Dosage: BLOCK 1
  8. DOXORUBICIN [Concomitant]
     Active Substance: DOXORUBICIN
     Indication: B precursor type acute leukaemia
     Dosage: ON DAY 1; BLOCK 1
     Route: 042
  9. VINCRISTINE [Concomitant]
     Active Substance: VINCRISTINE
     Indication: Acute lymphocytic leukaemia recurrent
     Dosage: ON DAYS 1, 8, 15 AND 22; BLOCK 1
  10. CYCLOPHOSPHAMIDE [Concomitant]
     Active Substance: CYCLOPHOSPHAMIDE
     Indication: Acute lymphocytic leukaemia recurrent
     Dosage: BLOCK 2, FROM DAYS 1 TO 5.
  11. ETOPOSIDE [Concomitant]
     Active Substance: ETOPOSIDE
     Indication: Acute lymphocytic leukaemia recurrent
     Dosage: BLOCK 2, FROM DAYS 1 TO 5.
  12. METHOTREXATE [Suspect]
     Active Substance: METHOTREXATE
     Indication: Acute lymphocytic leukaemia recurrent
     Dosage: ON DAY 22 OF BLOCK 2
     Route: 042
     Dates: start: 20221004, end: 20221004
  13. BORTEZOMIB [Concomitant]
     Active Substance: BORTEZOMIB
     Indication: Acute lymphocytic leukaemia recurrent
     Dosage: ON DAYS 1, 4, 8 AND 11 IN BLOCK 1 AND ON DAYS 1, 4, AND 8 IN BLOCK 2
  14. PREDNISONE [Concomitant]
     Active Substance: PREDNISONE
     Indication: Acute lymphocytic leukaemia recurrent
     Dosage: BLOCK 1
  15. DOXORUBICIN [Concomitant]
     Active Substance: DOXORUBICIN
     Indication: Acute lymphocytic leukaemia recurrent
     Dosage: ON DAY 1; BLOCK 1
     Route: 042

REACTIONS (2)
  - White blood cell count decreased [Recovered/Resolved]
  - Infection [Unknown]

NARRATIVE: CASE EVENT DATE: 20221005
